FAERS Safety Report 23265995 (Version 2)
Quarter: 2024Q2

REPORT INFORMATION
  Report Type: Spontaneous
  Country: US (occurrence: US)
  Receive Date: 20231206
  Receipt Date: 20240624
  Transmission Date: 20240716
  Serious: Yes (Other)
  Sender: FDA-Public Use
  Company Number: US-ABBVIE-5526758

PATIENT
  Sex: Male
  Weight: 122 kg

DRUGS (3)
  1. VENCLEXTA [Suspect]
     Active Substance: VENETOCLAX
     Indication: Chronic myeloid leukaemia
     Dosage: DAY 2 - TAKE ONE 50 MG TAB ?FORM STRENGHT-50 MILLIGRAM
     Route: 048
     Dates: start: 2023, end: 2023
  2. VENCLEXTA [Suspect]
     Active Substance: VENETOCLAX
     Indication: Chronic myeloid leukaemia
     Dosage: FORM STRENGHT-10 MG?DAY 1- TAKE TWO 10MG TABS
     Route: 048
     Dates: start: 202310, end: 202310
  3. VENCLEXTA [Suspect]
     Active Substance: VENETOCLAX
     Indication: Chronic myeloid leukaemia
     Dosage: DAY 3 ?TWO 10MG TABLET AND ONE 50MG TABLET
     Route: 048
     Dates: start: 2023

REACTIONS (2)
  - Leukaemia [Not Recovered/Not Resolved]
  - Off label use [Not Recovered/Not Resolved]

NARRATIVE: CASE EVENT DATE: 20230101
